FAERS Safety Report 10175830 (Version 3)
Quarter: 2014Q3

REPORT INFORMATION
  Report Type: Spontaneous
  Country: BR (occurrence: BR)
  Receive Date: 20140516
  Receipt Date: 20140826
  Transmission Date: 20150326
  Serious: Yes (Hospitalization, Other)
  Sender: FDA-Public Use
  Company Number: BR-ASTRAZENECA-2014SE32807

PATIENT
  Age: 528 Month
  Sex: Male
  Weight: 77 kg

DRUGS (8)
  1. SELOZOK [Suspect]
     Active Substance: METOPROLOL SUCCINATE
     Indication: HYPERTENSION
     Route: 048
     Dates: start: 201403
  2. LOSARTAN [Concomitant]
     Active Substance: LOSARTAN
     Indication: HYPERTENSION
  3. CRESTOR [Suspect]
     Active Substance: ROSUVASTATIN CALCIUM
     Indication: BLOOD CHOLESTEROL INCREASED
     Route: 048
     Dates: start: 2009, end: 201402
  4. BRILINTA [Suspect]
     Active Substance: TICAGRELOR
     Indication: ISCHAEMIC HEART DISEASE PROPHYLAXIS
     Route: 048
     Dates: start: 2014
  5. FRONTAL [Concomitant]
     Active Substance: ALPRAZOLAM
     Dosage: 0.5 BID (2.00PM AND 9.00PM).
  6. PROCIMAX [Concomitant]
     Active Substance: CITALOPRAM HYDROBROMIDE
  7. CRESTOR [Suspect]
     Active Substance: ROSUVASTATIN CALCIUM
     Indication: BLOOD CHOLESTEROL INCREASED
     Route: 048
     Dates: start: 201403
  8. ABLOK [Suspect]
     Active Substance: ATENOLOL
     Indication: HYPERTENSION
     Route: 048
     Dates: start: 2009, end: 201402

REACTIONS (4)
  - Myocardial infarction [Recovered/Resolved]
  - Off label use [Not Recovered/Not Resolved]
  - Weight decreased [Not Recovered/Not Resolved]
  - Procedural anxiety [Not Recovered/Not Resolved]

NARRATIVE: CASE EVENT DATE: 201402
